FAERS Safety Report 20872067 (Version 2)
Quarter: 2022Q2

REPORT INFORMATION
  Report Type: Spontaneous
  Country: US (occurrence: US)
  Receive Date: 20220525
  Receipt Date: 20220617
  Transmission Date: 20220721
  Serious: Yes (Other)
  Sender: FDA-Public Use
  Company Number: US-BAYER-2022A070049

PATIENT
  Sex: Female

DRUGS (1)
  1. MIRENA [Suspect]
     Active Substance: LEVONORGESTREL
     Indication: Intra-uterine contraceptive device insertion
     Dosage: 20?G/DAY
     Route: 015
     Dates: start: 202202, end: 20220510

REACTIONS (9)
  - Genital haemorrhage [None]
  - Device dislocation [Recovered/Resolved]
  - Complication of device removal [None]
  - Embedded device [None]
  - Abdominal pain [None]
  - Vaginal discharge [None]
  - Vulvovaginal pruritus [None]
  - Medical device pain [Recovered/Resolved]
  - Vaginal infection [None]

NARRATIVE: CASE EVENT DATE: 20220101
